FAERS Safety Report 5258005-7 (Version None)
Quarter: 2007Q1

REPORT INFORMATION
  Report Type: 
  Country: None (occurrence: None)
  Receive Date: 20070307
  Receipt Date: 20070201
  Transmission Date: 20070707
  Serious: No
  Sender: FDA-Public Use
  Company Number: US-GLAXOSMITHKLINE-A0630789A

PATIENT
  Age: 21 Year
  Sex: Male
  Weight: 113.6 kg

DRUGS (5)
  1. REQUIP [Suspect]
     Indication: PERIODIC LIMB MOVEMENT DISORDER
     Route: 048
     Dates: start: 20060920, end: 20061117
  2. EFFEXOR XR [Concomitant]
  3. WELLBUTRIN XL [Concomitant]
  4. KLONOPIN [Concomitant]
     Dosage: 1MG AT NIGHT
  5. PROVIGIL [Concomitant]
     Dosage: 200MG IN THE MORNING

REACTIONS (4)
  - AGITATION [None]
  - EARLY MORNING AWAKENING [None]
  - INITIAL INSOMNIA [None]
  - PARADOXICAL DRUG REACTION [None]
